FAERS Safety Report 8274441-9 (Version None)
Quarter: 2012Q1

REPORT INFORMATION
  Report Type: 
  Country: None (occurrence: None)
  Receive Date: 20120312
  Receipt Date: 20110926
  Transmission Date: 20120608
  Serious: No
  Sender: FDA-Public Use
  Company Number: 2011SP045494

PATIENT
  Age: 43 Year
  Sex: Female

DRUGS (4)
  1. CITALOPRAM HYDROBROMIDE [Concomitant]
  2. ALPRAZOLAM [Concomitant]
  3. SAPHRIS [Suspect]
     Indication: MANIA
     Dosage: 10 MG;HS;
     Dates: start: 20110818, end: 20110919
  4. TOPIRAMATE [Concomitant]

REACTIONS (3)
  - INCORRECT ROUTE OF DRUG ADMINISTRATION [None]
  - CHEMICAL BURN OF GASTROINTESTINAL TRACT [None]
  - INAPPROPRIATE SCHEDULE OF DRUG ADMINISTRATION [None]
